FAERS Safety Report 11128580 (Version 3)
Quarter: 2016Q1

REPORT INFORMATION
  Report Type: Report from Study
  Country: US (occurrence: US)
  Receive Date: 20150521
  Receipt Date: 20160210
  Transmission Date: 20160525
  Serious: Yes (Other)
  Sender: FDA-Public Use
  Company Number: US-SA-2014SA125937

PATIENT
  Age: 57 Year
  Sex: Female

DRUGS (5)
  1. AUBAGIO [Suspect]
     Active Substance: TERIFLUNOMIDE
     Indication: MULTIPLE SCLEROSIS
     Route: 048
     Dates: start: 201409
  2. TRAZODONE [Concomitant]
     Active Substance: TRAZODONE HYDROCHLORIDE
  3. AUBAGIO [Suspect]
     Active Substance: TERIFLUNOMIDE
     Indication: MULTIPLE SCLEROSIS
     Route: 048
  4. FETZIMA [Concomitant]
     Active Substance: LEVOMILNACIPRAN HYDROCHLORIDE
  5. ZANAFLEX [Concomitant]
     Active Substance: TIZANIDINE HYDROCHLORIDE

REACTIONS (28)
  - Altered state of consciousness [Recovered/Resolved]
  - Decreased appetite [Unknown]
  - Tremor [Recovered/Resolved]
  - Fatigue [Unknown]
  - Muscle spasms [Unknown]
  - Band sensation [Unknown]
  - Paraesthesia [Unknown]
  - Malaise [Unknown]
  - Pulmonary congestion [Unknown]
  - Multiple sclerosis [Unknown]
  - Insomnia [Unknown]
  - Staphylococcal infection [Unknown]
  - Photopsia [Unknown]
  - Dizziness [Unknown]
  - Pain [Unknown]
  - Discomfort [Unknown]
  - Paraesthesia [Not Recovered/Not Resolved]
  - Alopecia [Unknown]
  - Fall [Unknown]
  - Pyrexia [Not Recovered/Not Resolved]
  - Hyperhidrosis [Not Recovered/Not Resolved]
  - Seizure [Unknown]
  - Cough [Unknown]
  - Hypoaesthesia [Not Recovered/Not Resolved]
  - Feeling abnormal [Unknown]
  - Headache [Unknown]
  - Nuclear magnetic resonance imaging abnormal [Recovering/Resolving]
  - Drug dose omission [Unknown]

NARRATIVE: CASE EVENT DATE: 2014
